FAERS Safety Report 9799511 (Version 1)
Quarter: 2014Q1

REPORT INFORMATION
  Report Type: Spontaneous
  Country: US (occurrence: None)
  Receive Date: 20140103
  Receipt Date: 20140103
  Transmission Date: 20141002
  Serious: Yes (Life-Threatening, Hospitalization)
  Sender: FDA-Public Use
  Company Number: None

PATIENT
  Age: 71 Year
  Sex: Male
  Weight: 86.5 kg

DRUGS (5)
  1. FLUOROURACIL [Suspect]
     Indication: COLON CANCER
     Dosage: 5112 MG OVER 46 HRS Q2 WKS INFUSION
     Dates: start: 20131203
  2. ALOXI [Concomitant]
  3. OXALIPLATIN [Concomitant]
  4. AMLODIPINE [Concomitant]
  5. TRICOR [Concomitant]

REACTIONS (2)
  - Angina unstable [None]
  - Electrocardiogram change [None]
